FAERS Safety Report 17325530 (Version 1)
Quarter: 2020Q1

REPORT INFORMATION
  Report Type: Spontaneous
  Country: AR (occurrence: AR)
  Receive Date: 20200127
  Receipt Date: 20200127
  Transmission Date: 20200409
  Serious: Yes (Other)
  Sender: FDA-Public Use
  Company Number: AR-PFIZER INC-2020036545

PATIENT
  Age: 57 Year
  Sex: Female

DRUGS (2)
  1. LETROZOL [Concomitant]
     Active Substance: LETROZOLE
  2. IBRANCE [Suspect]
     Active Substance: PALBOCICLIB

REACTIONS (4)
  - Encapsulation reaction [Unknown]
  - Haemorrhage [Unknown]
  - Decreased immune responsiveness [Unknown]
  - Diarrhoea [Unknown]
